FAERS Safety Report 6682773-0 (Version None)
Quarter: 2010Q2

REPORT INFORMATION
  Report Type: 
  Country: None (occurrence: None)
  Receive Date: 20100415
  Receipt Date: 20100408
  Transmission Date: 20101027
  Serious: Yes (Other)
  Sender: FDA-Public Use
  Company Number: AU-ROCHE-684300

PATIENT
  Sex: Male

DRUGS (5)
  1. ACTEMRA [Suspect]
     Indication: RHEUMATOID ARTHRITIS
     Dosage: FORM: INFUSION, FREQ: EVERY 4/52
     Route: 042
     Dates: start: 20091201
  2. NEXIUM [Concomitant]
     Route: 048
  3. DIAZEPAM [Concomitant]
     Dosage: TAKEN PRN
     Route: 048
  4. SOMAC [Concomitant]
     Dosage: FREQUENCY: NOCTE.
     Route: 048
  5. DOXYCYCLINE [Concomitant]

REACTIONS (1)
  - NAUSEA [None]
